FAERS Safety Report 5939713-9 (Version None)
Quarter: 2008Q4

REPORT INFORMATION
  Report Type: 
  Country: None (occurrence: None)
  Receive Date: 20081031
  Receipt Date: 20081031
  Transmission Date: 20090506
  Serious: Yes (Disabling, Other)
  Sender: FDA-Public Use
  Company Number: None

PATIENT
  Age: 88 Year
  Sex: Female
  Weight: 72.5755 kg

DRUGS (1)
  1. SANCTURA [Suspect]
     Indication: HYPERTONIC BLADDER
     Dosage: 1 CAPSULE DAILY 1 HR AFT BREAKFAST
     Dates: start: 20080809, end: 20080823

REACTIONS (5)
  - ANOSMIA [None]
  - CONDITION AGGRAVATED [None]
  - FEELING ABNORMAL [None]
  - SENSORY LOSS [None]
  - URINARY INCONTINENCE [None]
